FAERS Safety Report 4342340-0 (Version None)
Quarter: 2004Q2

REPORT INFORMATION
  Report Type: 
  Country: None (occurrence: None)
  Receive Date: 20040416
  Receipt Date: 20040413
  Transmission Date: 20050107
  Serious: Yes (Hospitalization)
  Sender: FDA-Public Use
  Company Number: US-SHR-03-013107

PATIENT
  Age: 58 Year
  Sex: Male

DRUGS (1)
  1. CAMPATH [Suspect]
     Indication: T-CELL PROLYMPHOCYTIC LEUKAEMIA
     Dosage: 2 CYCLES COMPLETED; INTRAVENOUS
     Route: 042
     Dates: start: 20030101, end: 20030101

REACTIONS (1)
  - CARDIOMYOPATHY ACUTE [None]
